FAERS Safety Report 10273036 (Version 6)
Quarter: 2015Q4

REPORT INFORMATION
  Report Type: Report from Study
  Country: US (occurrence: US)
  Receive Date: 20140702
  Receipt Date: 20151026
  Transmission Date: 20160304
  Serious: Yes (Hospitalization, Other)
  Sender: FDA-Public Use
  Company Number: US-SA-2013SA131428

PATIENT
  Age: 68 Year
  Sex: Female

DRUGS (2)
  1. AUBAGIO [Suspect]
     Active Substance: TERIFLUNOMIDE
     Indication: MULTIPLE SCLEROSIS
     Route: 048
     Dates: start: 20130618
  2. AUBAGIO [Suspect]
     Active Substance: TERIFLUNOMIDE
     Indication: MULTIPLE SCLEROSIS
     Route: 048
     Dates: end: 20150830

REACTIONS (27)
  - Mobility decreased [Unknown]
  - Hypothermia [Unknown]
  - Disturbance in attention [Unknown]
  - Chest discomfort [Unknown]
  - Melanocytic naevus [Unknown]
  - Lymphadenopathy [Unknown]
  - Dyspepsia [Unknown]
  - Acne [Unknown]
  - Abdominal pain upper [Unknown]
  - Vertigo [Unknown]
  - Asthenia [Unknown]
  - Urinary tract infection [Unknown]
  - Muscle spasms [Unknown]
  - Pyrexia [Unknown]
  - Sepsis [Unknown]
  - Pain in extremity [Unknown]
  - Cataract [Unknown]
  - Feeling hot [Unknown]
  - Abdominal distension [Unknown]
  - Oral herpes [Unknown]
  - Eye disorder [Unknown]
  - Malaise [Unknown]
  - Visual acuity reduced [Unknown]
  - Abasia [Unknown]
  - Feeling cold [Unknown]
  - Fall [Unknown]
  - Drug dose omission [Unknown]

NARRATIVE: CASE EVENT DATE: 201302
